FAERS Safety Report 13792004 (Version 1)
Quarter: 2017Q3

REPORT INFORMATION
  Report Type: Spontaneous
  Country: US (occurrence: US)
  Receive Date: 20170725
  Receipt Date: 20170725
  Transmission Date: 20171127
  Serious: No
  Sender: FDA-Public Use
  Company Number: US-ROCHE-1945993

PATIENT
  Age: 77 Year
  Sex: Female
  Weight: 90.8 kg

DRUGS (1)
  1. OCREVUS [Suspect]
     Active Substance: OCRELIZUMAB
     Indication: PROGRESSIVE MULTIPLE SCLEROSIS
     Dosage: YES
     Route: 042
     Dates: start: 20170531

REACTIONS (3)
  - Body height decreased [Unknown]
  - Sleep disorder [Unknown]
  - Arthropathy [Unknown]

NARRATIVE: CASE EVENT DATE: 20170531
